FAERS Safety Report 8367136-4 (Version None)
Quarter: 2012Q1

REPORT INFORMATION
  Report Type: 
  Country: None (occurrence: None)
  Receive Date: 20120323
  Receipt Date: 20110825
  Transmission Date: 20120608
  Serious: Yes (Hospitalization)
  Sender: FDA-Public Use
  Company Number: 163-21880-11072744

PATIENT
  Age: 49 Year
  Sex: Female
  Weight: 92.5338 kg

DRUGS (5)
  1. BIAXIN [Concomitant]
  2. DEXAMETHASONE [Concomitant]
  3. LANTUS [Concomitant]
  4. LORTAB (VI CODIN) (UNKNOWN) [Concomitant]
  5. REVLIMID [Suspect]
     Indication: MULTIPLE MYELOMA
     Dosage: 25 MG, QD X 21 DAYS, PO
     Route: 048
     Dates: start: 20110301, end: 20110711

REACTIONS (1)
  - PULMONARY EMBOLISM [None]
